FAERS Safety Report 6345007-2 (Version None)
Quarter: 2009Q3

REPORT INFORMATION
  Report Type: 
  Country: None (occurrence: None)
  Receive Date: 20090909
  Receipt Date: 20090901
  Transmission Date: 20100115
  Serious: Yes (Other)
  Sender: FDA-Public Use
  Company Number: US-ASTRAZENECA-2009UW03720

PATIENT
  Age: 42 Year
  Sex: Female
  Weight: 116.1 kg

DRUGS (5)
  1. SEROQUEL [Suspect]
     Indication: SLEEP DISORDER
     Route: 048
     Dates: start: 20050101, end: 20060101
  2. TRICOR [Concomitant]
     Indication: BLOOD CHOLESTEROL INCREASED
  3. TRICOR [Concomitant]
     Indication: HYPERLIPIDAEMIA
  4. ZETIA [Concomitant]
     Indication: BLOOD CHOLESTEROL INCREASED
  5. ZETIA [Concomitant]
     Indication: HYPERLIPIDAEMIA

REACTIONS (3)
  - MYOCARDIAL INFARCTION [None]
  - NECK INJURY [None]
  - TYPE 2 DIABETES MELLITUS [None]
